FAERS Safety Report 5483445-0 (Version None)
Quarter: 2007Q4

REPORT INFORMATION
  Report Type: 
  Country: None (occurrence: None)
  Receive Date: 20071009
  Receipt Date: 20070927
  Transmission Date: 20080405
  Serious: Yes (Other)
  Sender: FDA-Public Use
  Company Number: 2007US002360

PATIENT
  Age: 4 Year
  Sex: Female

DRUGS (2)
  1. PROTOPIC [Suspect]
     Indication: OFF LABEL USE
     Dosage: 0.1%, TOPICAL
     Route: 061
     Dates: start: 20030101, end: 20061101
  2. ELIDEL [Suspect]
     Indication: DERMATITIS ATOPIC
     Dosage: TOPICAL
     Route: 061
     Dates: start: 20010101, end: 20030101

REACTIONS (2)
  - COMPLEMENT FACTOR C1 DECREASED [None]
  - SINUSITIS [None]
